FAERS Safety Report 8979848 (Version 1)
Quarter: 2012Q4

REPORT INFORMATION
  Report Type: 
  Country: FI (occurrence: FI)
  Receive Date: 20121221
  Receipt Date: 20121221
  Transmission Date: 20130627
  Serious: Yes (Other)
  Sender: FDA-Public Use
  Company Number: PHHY2012FI117430

PATIENT
  Age: 32 Year
  Sex: Female

DRUGS (3)
  1. LEPONEX [Suspect]
     Dosage: UNK
  2. TENOX (TEMAZEPAM) [Concomitant]
  3. OPAMOX [Concomitant]

REACTIONS (7)
  - Respiratory tract infection [Recovered/Resolved]
  - Pyrexia [Recovered/Resolved]
  - Neutrophil count increased [Recovered/Resolved]
  - White blood cell count increased [Recovered/Resolved]
  - Neutropenia [Unknown]
  - Neutrophil count decreased [Unknown]
  - Leukopenia [Unknown]
